FAERS Safety Report 10278515 (Version 1)
Quarter: 2014Q3

REPORT INFORMATION
  Report Type: Spontaneous
  Country: US (occurrence: US)
  Receive Date: 20140704
  Receipt Date: 20140704
  Transmission Date: 20150326
  Serious: Yes (Life-Threatening, Hospitalization)
  Sender: FDA-Public Use
  Company Number: PHHY2014US080755

PATIENT
  Age: 19 Year
  Sex: Male

DRUGS (1)
  1. AMOXICILLIN. [Suspect]
     Active Substance: AMOXICILLIN
     Indication: SINUSITIS

REACTIONS (13)
  - Pyrexia [Recovered/Resolved]
  - Rash macular [Recovered/Resolved]
  - Thrombocytopenia [Recovered/Resolved]
  - Lymphadenopathy [Recovered/Resolved]
  - Eosinophilia [Recovered/Resolved]
  - Lung infiltration [Recovered/Resolved]
  - Pulmonary eosinophilia [Recovered/Resolved]
  - Perivascular dermatitis [Recovered/Resolved]
  - Hepatitis [Recovered/Resolved]
  - Pulmonary alveolar haemorrhage [Recovered/Resolved]
  - Drug reaction with eosinophilia and systemic symptoms [Recovered/Resolved]
  - Acute respiratory distress syndrome [Recovered/Resolved]
  - Pulmonary oedema [Recovered/Resolved]
